FAERS Safety Report 17755730 (Version 1)
Quarter: 2020Q2

REPORT INFORMATION
  Report Type: Spontaneous
  Country: US (occurrence: US)
  Receive Date: 20200507
  Receipt Date: 20200507
  Transmission Date: 20200714
  Serious: No
  Sender: FDA-Public Use
  Company Number: US-SA-2020SA116718

PATIENT
  Age: 66 Year
  Sex: Male

DRUGS (16)
  1. ALBUTEROL [SALBUTAMOL SULFATE] [Concomitant]
     Active Substance: ALBUTEROL SULFATE
  2. DONEPEZIL HCL [Concomitant]
     Active Substance: DONEPEZIL HYDROCHLORIDE
  3. NIZATIDINE. [Concomitant]
     Active Substance: NIZATIDINE
  4. AUBAGIO [Suspect]
     Active Substance: TERIFLUNOMIDE
     Dosage: 14 MG, QD
     Route: 048
  5. DOXYCYCLINE HYCLATE. [Concomitant]
     Active Substance: DOXYCYCLINE HYCLATE
  6. TAMSULOSIN HCL [Concomitant]
     Active Substance: TAMSULOSIN HYDROCHLORIDE
  7. MELOXICAM. [Concomitant]
     Active Substance: MELOXICAM
  8. CEFUROXIME SODIUM. [Concomitant]
     Active Substance: CEFUROXIME SODIUM
  9. CYCLOBENZAPRINE HCL [Concomitant]
     Active Substance: CYCLOBENZAPRINE HYDROCHLORIDE
  10. LOVASTATIN. [Concomitant]
     Active Substance: LOVASTATIN
  11. METHYLPHENIDATE HYDROCHLORIDE. [Concomitant]
     Active Substance: METHYLPHENIDATE HYDROCHLORIDE
  12. TRAMADOL HCL/ACETAMINOPHEN [Concomitant]
     Active Substance: ACETAMINOPHEN\TRAMADOL HYDROCHLORIDE
  13. CLONAZEPAM. [Concomitant]
     Active Substance: CLONAZEPAM
  14. METOPROLOL TARTRATE. [Concomitant]
     Active Substance: METOPROLOL TARTRATE
  15. RITALIN [Concomitant]
     Active Substance: METHYLPHENIDATE HYDROCHLORIDE
  16. PROAIR RESPICLICK [Concomitant]
     Active Substance: ALBUTEROL SULFATE

REACTIONS (1)
  - Product dose omission [Unknown]
